FAERS Safety Report 25569125 (Version 1)
Quarter: 2025Q3

REPORT INFORMATION
  Report Type: Report from Study
  Country: EU (occurrence: EU)
  Receive Date: 20250716
  Receipt Date: 20250716
  Transmission Date: 20251021
  Serious: Yes (Hospitalization)
  Sender: MYLAN
  Company Number: EU-002147023-NVSC2022NL276315

PATIENT
  Age: 62 Year
  Sex: Male
  Weight: 68 kg

DRUGS (23)
  1. ABIRATERONE [Suspect]
     Active Substance: ABIRATERONE
     Indication: Hormone-refractory prostate cancer
  2. ABIRATERONE [Suspect]
     Active Substance: ABIRATERONE
     Dosage: 500 MILLIGRAM, BID (2 TIMES PER DAY) (1000 MILLIGRAM, DAILY (QD))
     Dates: start: 20220823
  3. OXYCODONE [Suspect]
     Active Substance: OXYCODONE
     Indication: Product used for unknown indication
  4. ACETAMINOPHEN [Concomitant]
     Active Substance: ACETAMINOPHEN
     Indication: Back pain
  5. ACETAMINOPHEN [Concomitant]
     Active Substance: ACETAMINOPHEN
     Indication: Sacral pain
  6. OXYCODONE [Concomitant]
     Active Substance: OXYCODONE
     Indication: Sacral pain
     Dates: start: 20220830, end: 20221129
  7. OXYCODONE [Concomitant]
     Active Substance: OXYCODONE
     Indication: Back pain
     Dates: start: 20220906, end: 20221129
  8. PREDNISONE [Concomitant]
     Active Substance: PREDNISONE
     Indication: Prostate cancer
     Dates: start: 20220823, end: 20221201
  9. OMEPRAZOLE [Concomitant]
     Active Substance: OMEPRAZOLE
     Indication: Gastrointestinal disorder prophylaxis
     Dates: start: 20220906, end: 20221227
  10. OMEPRAZOLE [Concomitant]
     Active Substance: OMEPRAZOLE
     Indication: Diaphragmatic hernia
  11. DENOSUMAB [Concomitant]
     Active Substance: DENOSUMAB
     Indication: General physical condition
     Dosage: UNK UNK, MONTHLY (QMO)
     Dates: start: 20221108, end: 20230301
  12. Colex [Concomitant]
     Indication: Constipation
     Dates: start: 20221129, end: 20221129
  13. MOVICOLON [Concomitant]
     Active Substance: POLYETHYLENE GLYCOL 3350\POTASSIUM CHLORIDE\SODIUM BICARBONATE\SODIUM CHLORIDE
     Indication: Constipation
     Dosage: UNK, QID (SACHET) (4X DAILY)
     Dates: start: 20221129, end: 20230829
  14. CANNABIDIOL\HERBALS [Concomitant]
     Active Substance: CANNABIDIOL\HERBALS
     Indication: Sacral pain
  15. GOSERELIN [Concomitant]
     Active Substance: GOSERELIN
     Indication: Premedication
  16. METHADONE [Concomitant]
     Active Substance: METHADONE HYDROCHLORIDE
     Indication: Bone pain
     Dates: start: 20230827, end: 20230901
  17. SODIUM CHLORIDE [Concomitant]
     Active Substance: SODIUM CHLORIDE
     Indication: Hypophagia
     Dates: start: 20230824, end: 20230825
  18. SODIUM CHLORIDE [Concomitant]
     Active Substance: SODIUM CHLORIDE
     Dates: start: 20230827, end: 20230829
  19. ZOLEDRONIC ACID [Concomitant]
     Active Substance: ZOLEDRONIC ACID
     Indication: Hypercalcaemia
     Dates: start: 20230824, end: 20230824
  20. PREGABALIN [Concomitant]
     Active Substance: PREGABALIN
     Indication: Bone pain
     Dates: start: 20230825, end: 20230831
  21. METOCLOPRAMIDE [Concomitant]
     Active Substance: METOCLOPRAMIDE
     Indication: Nausea
     Dates: start: 20230827, end: 20230829
  22. DALTEPARIN [Concomitant]
     Active Substance: DALTEPARIN
     Indication: Thrombosis prophylaxis
     Dates: start: 20230828, end: 20230905
  23. OXAZEPAM [Concomitant]
     Active Substance: OXAZEPAM
     Indication: Discomfort
     Dates: start: 20230828, end: 20230828

REACTIONS (2)
  - Bone pain [Recovering/Resolving]
  - Constipation [Recovered/Resolved]

NARRATIVE: CASE EVENT DATE: 20221126
